FAERS Safety Report 18437453 (Version 1)
Quarter: 2020Q4

REPORT INFORMATION
  Report Type: Spontaneous
  Country: NL (occurrence: NL)
  Receive Date: 20201028
  Receipt Date: 20201028
  Transmission Date: 20210114
  Serious: Yes (Hospitalization, Other)
  Sender: FDA-Public Use
  Company Number: NVSC2020NL283628

PATIENT
  Sex: Female

DRUGS (3)
  1. VALSARTAN. [Suspect]
     Active Substance: VALSARTAN
     Indication: PRODUCT USED FOR UNKNOWN INDICATION
     Dosage: 160 MG, QD (80 MILLIGRAM, IN THE MORNING AND EVENING FOR SEVEN DAYS, REPORTED AS VALSARTAN KRKA 80MG
     Route: 065
  2. RENITEC [ENALAPRILAT] [Suspect]
     Active Substance: ENALAPRILAT
     Dosage: 20 MG
     Route: 048
  3. RENITEC [ENALAPRILAT] [Suspect]
     Active Substance: ENALAPRILAT
     Indication: PRODUCT USED FOR UNKNOWN INDICATION
     Dosage: 10 MG
     Route: 048
     Dates: start: 1980

REACTIONS (9)
  - Suicidal ideation [Unknown]
  - Crying [Unknown]
  - Feeling drunk [Not Recovered/Not Resolved]
  - Blood pressure increased [Unknown]
  - Conversion disorder [Unknown]
  - Hyperventilation [Unknown]
  - Product availability issue [Unknown]
  - Adverse event [Unknown]
  - Rash [Unknown]

NARRATIVE: CASE EVENT DATE: 2020
